FAERS Safety Report 4786869-X (Version None)
Quarter: 2005Q3

REPORT INFORMATION
  Report Type: 
  Country: None (occurrence: None)
  Receive Date: 20050930
  Receipt Date: 20050912
  Transmission Date: 20060218
  Serious: No
  Sender: FDA-Public Use
  Company Number: US_0505117077

PATIENT
  Age: 47 Year
  Sex: Female
  Weight: 74 kg

DRUGS (15)
  1. ZYPREXA [Suspect]
     Indication: BIPOLAR DISORDER
     Dosage: 10 MG/ONCE DAY
     Dates: start: 19990120, end: 20040830
  2. TEMAZEPAM [Concomitant]
  3. DIVALPROEX(VALPROATE SEMISODIUM) [Concomitant]
  4. LORAZEPAM [Concomitant]
  5. CHLORPHENIRAMINE W/PSEUDOEPHEDRINE [Concomitant]
  6. ORTHO TRI-CYCLEN [Concomitant]
  7. PHENAZOPYRIDINE [Concomitant]
  8. CLORAZEPATE DIPOTASSIUM [Concomitant]
  9. NEFAZODONE HCL [Concomitant]
  10. GATIFLOXACIN [Concomitant]
  11. PRAVACHOL [Concomitant]
  12. PROPOXYPHENE NAPSYLATE W/ ACETAMINOPHEN [Concomitant]
  13. SENNA [Concomitant]
  14. PAROXETINE HCL [Concomitant]
  15. RAMIPRIL [Concomitant]

REACTIONS (5)
  - BLOOD CHOLESTEROL INCREASED [None]
  - BLOOD TRIGLYCERIDES INCREASED [None]
  - DIABETES MELLITUS [None]
  - EPISTAXIS [None]
  - LOW DENSITY LIPOPROTEIN INCREASED [None]
